FAERS Safety Report 21397284 (Version 1)
Quarter: 2022Q3

REPORT INFORMATION
  Report Type: Report from Study
  Country: US (occurrence: None)
  Receive Date: 20220930
  Receipt Date: 20220930
  Transmission Date: 20221027
  Serious: Yes (Hospitalization)
  Sender: FDA-Public Use
  Company Number: US-Eisai Medical Research-EC-2022-124809

PATIENT
  Age: 69 Year
  Sex: Male
  Weight: 102 kg

DRUGS (20)
  1. LENVIMA [Suspect]
     Active Substance: LENVATINIB
     Indication: Thyroid cancer
     Route: 048
     Dates: start: 20201221, end: 20210129
  2. LENVIMA [Suspect]
     Active Substance: LENVATINIB
     Route: 048
     Dates: start: 20210206, end: 202202
  3. LENVIMA [Suspect]
     Active Substance: LENVATINIB
     Route: 048
     Dates: start: 202202, end: 202203
  4. LENVIMA [Suspect]
     Active Substance: LENVATINIB
     Route: 048
     Dates: start: 20220523, end: 2022
  5. LENVIMA [Suspect]
     Active Substance: LENVATINIB
     Route: 048
     Dates: start: 2022
  6. CHONDROITIN SULFATE (BOVINE)\GLUCOSAMINE SULFATE [Concomitant]
     Active Substance: CHONDROITIN SULFATE (BOVINE)\GLUCOSAMINE SULFATE
  7. VITAMIN D [Concomitant]
     Active Substance: VITAMIN D NOS
  8. ALENDRONATE [Concomitant]
     Active Substance: ALENDRONATE SODIUM
  9. XANAX [Concomitant]
     Active Substance: ALPRAZOLAM
  10. TRAMADOL [Concomitant]
     Active Substance: TRAMADOL
  11. BROVANA [Concomitant]
     Active Substance: ARFORMOTEROL TARTRATE
  12. PULMICORT TURBUHALER [Concomitant]
     Active Substance: BUDESONIDE
  13. DULOXETINE [Concomitant]
     Active Substance: DULOXETINE
  14. ASCORBIC ACID\IRON [Concomitant]
     Active Substance: ASCORBIC ACID\IRON
  15. SYNTHROID [Concomitant]
     Active Substance: LEVOTHYROXINE SODIUM
  16. EZETIMEIBE-SIMVASTATIN [Concomitant]
  17. TAMSULOSIN [Concomitant]
     Active Substance: TAMSULOSIN
  18. OMEPRAZOLE [Concomitant]
     Active Substance: OMEPRAZOLE
  19. PROCHLORPERAZINE [Concomitant]
     Active Substance: PROCHLORPERAZINE
  20. AMLODIPINE [Concomitant]
     Active Substance: AMLODIPINE BESYLATE

REACTIONS (5)
  - Muscular weakness [Recovering/Resolving]
  - Infection [Unknown]
  - Cardiac arrest [Unknown]
  - Tracheostomy malfunction [Unknown]
  - Dehydration [Unknown]

NARRATIVE: CASE EVENT DATE: 20220301
